FAERS Safety Report 10956510 (Version 2)
Quarter: 2015Q2

REPORT INFORMATION
  Report Type: Spontaneous
  Country: US (occurrence: US)
  Receive Date: 20150326
  Receipt Date: 20150407
  Transmission Date: 20150821
  Serious: Yes (Hospitalization)
  Sender: FDA-Public Use
  Company Number: US-MALLINCKRODT-T201501607

PATIENT
  Age: 72 Year
  Sex: Male

DRUGS (1)
  1. GABLOFEN [Suspect]
     Active Substance: BACLOFEN
     Indication: MUSCLE SPASTICITY
     Dosage: 291 MCG/DAY
     Route: 037

REACTIONS (5)
  - Bradycardia [Recovered/Resolved]
  - Drug withdrawal syndrome [Recovered/Resolved]
  - Implant site discharge [Recovered/Resolved]
  - Lethargy [Recovered/Resolved]
  - Therapeutic response decreased [None]

NARRATIVE: CASE EVENT DATE: 20150309
